FAERS Safety Report 23682423 (Version 4)
Quarter: 2024Q3

REPORT INFORMATION
  Report Type: Spontaneous
  Country: PK (occurrence: PK)
  Receive Date: 20240328
  Receipt Date: 20240729
  Transmission Date: 20241017
  Serious: No
  Sender: PFIZER
  Company Number: PK-PFIZER INC-PV202300160410

PATIENT
  Age: 34 Year
  Sex: Male
  Weight: 62 kg

DRUGS (4)
  1. IXIFI [Suspect]
     Active Substance: INFLIXIMAB-QBTX
     Indication: Ankylosing spondylitis
     Dosage: 300 MG
     Route: 042
     Dates: start: 202309
  2. IXIFI [Suspect]
     Active Substance: INFLIXIMAB-QBTX
     Indication: Uveitis
  3. PANADOL [Concomitant]
     Active Substance: ACETAMINOPHEN
     Dosage: UNK
     Route: 048
  4. PHENIRAMINE [Concomitant]
     Active Substance: PHENIRAMINE
     Dosage: UNK
     Route: 048

REACTIONS (2)
  - Off label use [Unknown]
  - Intentional product use issue [Unknown]
